FAERS Safety Report 7889511-4 (Version None)
Quarter: 2011Q4

REPORT INFORMATION
  Report Type: 
  Country: None (occurrence: None)
  Receive Date: 20111103
  Receipt Date: 20111026
  Transmission Date: 20120403
  Serious: Yes (Death, Hospitalization, Other)
  Sender: FDA-Public Use
  Company Number: JP-CEPHALON-2011002089

PATIENT
  Sex: Male

DRUGS (22)
  1. BENDAMUSTINE HCL [Suspect]
     Indication: MANTLE CELL LYMPHOMA
     Route: 042
     Dates: start: 20101227, end: 20101228
  2. BROTIZOLAM [Concomitant]
  3. DORIPENEM HYDRATE [Concomitant]
     Dates: start: 20101230, end: 20101230
  4. PREGABALIN [Concomitant]
     Dates: start: 20110121
  5. OXYCODONE HCL [Concomitant]
     Dates: start: 20100511, end: 20110213
  6. ACYCLOVIR [Concomitant]
     Dates: start: 20101227, end: 20110109
  7. FAROPENEM SODIUM HYDRATE [Concomitant]
     Dates: start: 20101229, end: 20110104
  8. DEXAMETHASONE [Concomitant]
     Dates: start: 20110317
  9. GRANISETRON HCL [Concomitant]
     Dates: start: 20101227, end: 20110429
  10. TRANEXAMIC ACID [Concomitant]
     Dates: start: 20110107, end: 20110130
  11. LENOGRASTIM [Concomitant]
     Dates: start: 20101229, end: 20101231
  12. OXYCODONE HCL [Concomitant]
     Dates: start: 20100124, end: 20100510
  13. DICLOFENAC SODIUM [Concomitant]
  14. BENDAMUSTINE HCL [Suspect]
     Route: 042
     Dates: start: 20110118, end: 20110119
  15. BENDAMUSTINE HCL [Suspect]
     Route: 042
     Dates: start: 20110428, end: 20110429
  16. OXYCODONE HCL [Concomitant]
     Dates: start: 20110214
  17. SULFAMETHOXAZOLE AND TRIMETHOPRIM [Concomitant]
  18. DORIPENEM HYDRATE [Concomitant]
     Dates: start: 20110117, end: 20110121
  19. ACYCLOVIR [Concomitant]
     Dates: start: 20110129, end: 20110211
  20. GRANISETRON HCL [Concomitant]
     Dates: start: 20110119, end: 20110120
  21. GRANISETRON HCL [Concomitant]
     Dates: start: 20110428, end: 20110429
  22. DEXAMETHASONE SODIUM PHOSPHATE [Concomitant]
     Dates: start: 20101227, end: 20110429

REACTIONS (17)
  - PLATELET COUNT DECREASED [None]
  - FUNGAEMIA [None]
  - HYPOCALCAEMIA [None]
  - FEBRILE NEUTROPENIA [None]
  - LYMPHOCYTE COUNT DECREASED [None]
  - DYSGEUSIA [None]
  - ALANINE AMINOTRANSFERASE INCREASED [None]
  - MANTLE CELL LYMPHOMA [None]
  - WHITE BLOOD CELL COUNT DECREASED [None]
  - RASH [None]
  - ASPARTATE AMINOTRANSFERASE INCREASED [None]
  - STAPHYLOCOCCAL SEPSIS [None]
  - NEUTROPHIL COUNT DECREASED [None]
  - PLEURISY [None]
  - HAEMOPTYSIS [None]
  - PYREXIA [None]
  - WEIGHT DECREASED [None]
